FAERS Safety Report 9772011 (Version 1)
Quarter: 2013Q4

REPORT INFORMATION
  Report Type: Spontaneous
  Country: US (occurrence: US)
  Receive Date: 20131219
  Receipt Date: 20131219
  Transmission Date: 20140711
  Serious: Yes (Hospitalization)
  Sender: FDA-Public Use
  Company Number: US-ROCHE-1322375

PATIENT
  Age: 54 Year
  Sex: Male

DRUGS (5)
  1. XOLAIR [Suspect]
     Indication: ASTHMA
     Route: 058
  2. ALBUTEROL [Concomitant]
  3. ADVAIR DISKUS [Concomitant]
     Dosage: 250
     Route: 065
  4. SIMVASTATIN [Concomitant]
     Route: 065
  5. SIMCOR (SIMVASTATIN) [Concomitant]
     Dosage: 1000-20
     Route: 065

REACTIONS (1)
  - Cerebrovascular accident [Unknown]
